FAERS Safety Report 9341010 (Version 3)
Quarter: 2013Q4

REPORT INFORMATION
  Report Type: Spontaneous
  Country: US (occurrence: US)
  Receive Date: 20130610
  Receipt Date: 20131126
  Transmission Date: 20140711
  Serious: No
  Sender: FDA-Public Use
  Company Number: US-PFIZER INC-2013169729

PATIENT
  Age: 15 Year
  Sex: Female
  Weight: 54.42 kg

DRUGS (3)
  1. CLINDAMYCIN PHOSPHATE [Suspect]
     Indication: SKIN LESION
     Dosage: UNK, 1X/DAY IN THE MORNING
     Dates: start: 20120402
  2. CLINDAMYCIN PHOSPHATE [Suspect]
     Indication: ACNE
  3. TRETINOIN [Concomitant]
     Indication: SKIN DISORDER
     Dosage: UNK

REACTIONS (2)
  - Poor quality drug administered [Unknown]
  - Product quality issue [Unknown]
